FAERS Safety Report 9494458 (Version 2)
Quarter: 2013Q3

REPORT INFORMATION
  Report Type: Spontaneous
  Country: FR (occurrence: None)
  Receive Date: 20130828
  Receipt Date: 20130917
  Transmission Date: 20140515
  Serious: Yes (Hospitalization)
  Sender: FDA-Public Use
  Company Number: ACO_37947_2013

PATIENT
  Age: 51 Year
  Sex: Female
  Weight: 47 kg

DRUGS (11)
  1. FAMPRIDINE-SR (FAMPRIDINE) TABLET [Suspect]
     Indication: MULTIPLE SCLEROSIS
     Route: 048
     Dates: start: 20130617, end: 20130722
  2. CERIS (TROSPIUM CHLORIDE) [Concomitant]
  3. BISOPROLOL HEMIFUMARATE (BISOPROLOL HEMIFUMARATE) [Concomitant]
  4. SEROPLEX (ESCITALOPRAM OXALATE) [Concomitant]
  5. BACLOFEN (BACLOFEN) [Concomitant]
  6. MOVICOL (MACROGOL 3350, POTASSIUM CHLORIDE, SODIUM BICARBONATE, SODIUM CHLORIDE) [Concomitant]
  7. AUGMENTIN (AMOXICILLIN TRIHYDRATE, CLAVULANATE POTASSIUM) [Concomitant]
  8. REBIF (INTERFERON BETA-1A) [Concomitant]
  9. DITROPEN (OXYBUTYNIN HYDROCHLORIDE) [Concomitant]
  10. VALSARTAN (VALSARTAN) [Concomitant]
  11. FUROSEMIDE [Concomitant]

REACTIONS (3)
  - Food poisoning [None]
  - Anaemia [None]
  - Cystitis [None]
